FAERS Safety Report 5207707-7 (Version None)
Quarter: 2006Q4

REPORT INFORMATION
  Report Type: 
  Country: None (occurrence: None)
  Receive Date: 20061030
  Receipt Date: 20060809
  Transmission Date: 20070319
  Serious: No
  Sender: FDA-Public Use
  Company Number: 2006CT000681

PATIENT
  Age: 48 Year
  Sex: Female
  Weight: 52.2 kg

DRUGS (10)
  1. VENTAVIS [Suspect]
     Indication: PULMONARY HYPERTENSION
     Dosage: 5 UG; 6 TO 9X/DAY; INH
     Route: 055
     Dates: start: 20060612
  2. CIPROFLOXACIN HCL [Suspect]
     Dates: start: 20060612
  3. LASIX [Concomitant]
  4. URSODIOL [Concomitant]
  5. VITAMIN CAP [Concomitant]
  6. GOLD SEAL ANTISEPTIC POWDER [Concomitant]
  7. GAMUNEX [Concomitant]
  8. ASCORBIC ACID [Concomitant]
  9. ALDACTONE [Concomitant]
  10. OXYGEN [Concomitant]

REACTIONS (1)
  - ORAL CANDIDIASIS [None]
